FAERS Safety Report 15990574 (Version 2)
Quarter: 2019Q1

REPORT INFORMATION
  Report Type: Spontaneous
  Country: SE (occurrence: SE)
  Receive Date: 20190221
  Receipt Date: 20190304
  Transmission Date: 20190418
  Serious: Yes (Other)
  Sender: FDA-Public Use
  Company Number: SE-009507513-1902SWE006041

PATIENT
  Age: 75 Year
  Sex: Female

DRUGS (11)
  1. KEYTRUDA [Suspect]
     Active Substance: PEMBROLIZUMAB
     Indication: ADENOCARCINOMA
     Dosage: 200 MG
     Route: 042
     Dates: start: 20181009, end: 20181211
  2. MADOPARK [Concomitant]
     Active Substance: BENSERAZIDE HYDROCHLORIDE\LEVODOPA
     Dosage: 2 TO THE EVENING
  3. OMEPRAZOLE. [Concomitant]
     Active Substance: OMEPRAZOLE
     Dosage: 0+0+1
  4. EZETROL [Concomitant]
     Active Substance: EZETIMIBE
     Dosage: 1X1
  5. CRESTOR [Concomitant]
     Active Substance: ROSUVASTATIN CALCIUM
     Dosage: 1X1
  6. METOPROLOL TARTRATE. [Concomitant]
     Active Substance: METOPROLOL TARTRATE
     Dosage: 1X1
  7. KEYTRUDA [Suspect]
     Active Substance: PEMBROLIZUMAB
     Dosage: 200 MG
     Route: 042
  8. PLENDIL [Concomitant]
     Active Substance: FELODIPINE
     Dosage: 1X1
  9. IMDUR [Concomitant]
     Active Substance: ISOSORBIDE MONONITRATE
     Dosage: 2X1
  10. TROMBYL [Concomitant]
     Active Substance: ASPIRIN
     Dosage: 1X1
  11. ENALAPRIL [Concomitant]
     Active Substance: ENALAPRIL
     Dosage: 1+O+1/2

REACTIONS (2)
  - Uveitis [Not Recovered/Not Resolved]
  - Chorioretinitis [Not Recovered/Not Resolved]

NARRATIVE: CASE EVENT DATE: 20181205
